FAERS Safety Report 15279446 (Version 1)
Quarter: 2018Q4

REPORT INFORMATION
  Report Type: Spontaneous
  Country: US (occurrence: US)
  Receive Date: 20180815
  Receipt Date: 20180815
  Transmission Date: 20190204
  Serious: No
  Sender: FDA-Public Use
  Company Number: US-TEVA-2018-US-941334

PATIENT
  Sex: Male

DRUGS (1)
  1. TESTOSTERONE TOPICAL SOLUTION, 30 MG/1.5 ML ACTUATION, CIII [Suspect]
     Active Substance: TESTOSTERONE
     Indication: BLOOD TESTOSTERONE DECREASED
     Dosage: TOPICAL SOLUTION?30/1.5 MG/ML
     Route: 061

REACTIONS (2)
  - Acne [Unknown]
  - Application site pain [Unknown]
